FAERS Safety Report 24189345 (Version 3)
Quarter: 2024Q3

REPORT INFORMATION
  Report Type: Spontaneous
  Country: MA (occurrence: MA)
  Receive Date: 20240808
  Receipt Date: 20240822
  Transmission Date: 20241016
  Serious: Yes (Death, Other)
  Sender: PFIZER
  Company Number: MA-MLMSERVICE-20240726-PI144482-00128-1

PATIENT
  Age: 23 Year
  Sex: Male

DRUGS (20)
  1. DOXORUBICIN HYDROCHLORIDE [Suspect]
     Active Substance: DOXORUBICIN HYDROCHLORIDE
     Indication: Embryonal rhabdomyosarcoma
     Dosage: RECEIVED THREE CYCLES
  2. DOXORUBICIN HYDROCHLORIDE [Suspect]
     Active Substance: DOXORUBICIN HYDROCHLORIDE
     Indication: Metastases to muscle
  3. DOXORUBICIN HYDROCHLORIDE [Suspect]
     Active Substance: DOXORUBICIN HYDROCHLORIDE
     Indication: Prostate sarcoma
  4. DOXORUBICIN HYDROCHLORIDE [Suspect]
     Active Substance: DOXORUBICIN HYDROCHLORIDE
     Indication: Metastases to lymph nodes
  5. DOXORUBICIN HYDROCHLORIDE [Suspect]
     Active Substance: DOXORUBICIN HYDROCHLORIDE
     Indication: Metastases to bone
  6. IFOSFAMIDE [Suspect]
     Active Substance: IFOSFAMIDE
     Indication: Metastases to lymph nodes
     Dosage: RECEIVED THREE CYCLES
  7. IFOSFAMIDE [Suspect]
     Active Substance: IFOSFAMIDE
     Indication: Metastases to bone
  8. IFOSFAMIDE [Suspect]
     Active Substance: IFOSFAMIDE
     Indication: Metastases to muscle
  9. IFOSFAMIDE [Suspect]
     Active Substance: IFOSFAMIDE
     Indication: Prostate sarcoma
  10. IFOSFAMIDE [Suspect]
     Active Substance: IFOSFAMIDE
     Indication: Embryonal rhabdomyosarcoma
  11. MESNA [Suspect]
     Active Substance: MESNA
     Indication: Prostate sarcoma
     Dosage: RECEIVED THREE CYCLES
  12. MESNA [Suspect]
     Active Substance: MESNA
     Indication: Metastases to muscle
  13. MESNA [Suspect]
     Active Substance: MESNA
     Indication: Metastases to bone
  14. MESNA [Suspect]
     Active Substance: MESNA
     Indication: Metastases to lymph nodes
  15. MESNA [Suspect]
     Active Substance: MESNA
     Indication: Embryonal rhabdomyosarcoma
  16. VINCRISTINE [Suspect]
     Active Substance: VINCRISTINE
     Indication: Metastases to muscle
     Dosage: RECEIVED THREE CYCLES
  17. VINCRISTINE [Suspect]
     Active Substance: VINCRISTINE
     Indication: Metastases to bone
  18. VINCRISTINE [Suspect]
     Active Substance: VINCRISTINE
     Indication: Embryonal rhabdomyosarcoma
  19. VINCRISTINE [Suspect]
     Active Substance: VINCRISTINE
     Indication: Metastases to lymph nodes
  20. VINCRISTINE [Suspect]
     Active Substance: VINCRISTINE
     Indication: Prostate sarcoma

REACTIONS (3)
  - Respiratory failure [Fatal]
  - Decreased immune responsiveness [Fatal]
  - Pneumonia [Fatal]
